FAERS Safety Report 6639023-0 (Version None)
Quarter: 2010Q1

REPORT INFORMATION
  Report Type: 
  Country: None (occurrence: None)
  Receive Date: 20100317
  Receipt Date: 20100312
  Transmission Date: 20100710
  Serious: No
  Sender: FDA-Public Use
  Company Number: US-ROXANE LABORATORIES, INC.-2010-RO-00265RO

PATIENT
  Sex: Male

DRUGS (1)
  1. LIDOCAINE [Suspect]
     Indication: PAIN
     Route: 061
     Dates: start: 20100311

REACTIONS (3)
  - DRUG INEFFECTIVE [None]
  - PRODUCT CONTAINER SEAL ISSUE [None]
  - PRODUCT PACKAGING QUANTITY ISSUE [None]
